FAERS Safety Report 7037005-0 (Version None)
Quarter: 2010Q4

REPORT INFORMATION
  Report Type: 
  Country: None (occurrence: None)
  Receive Date: 20101011
  Receipt Date: 20100928
  Transmission Date: 20110411
  Serious: Yes (Hospitalization)
  Sender: FDA-Public Use
  Company Number: FR-ELI_LILLY_AND_COMPANY-FR200909002454

PATIENT
  Sex: Male

DRUGS (7)
  1. ZYPREXA [Suspect]
     Indication: PSYCHOTIC DISORDER
     Dosage: 10 MG, DAILY (1/D)
     Route: 048
     Dates: start: 20050101
  2. ZYPREXA [Suspect]
     Dosage: 5 MG, DAILY (1/D)
  3. TERCIAN [Concomitant]
     Indication: PSYCHOTIC DISORDER
     Dosage: 250 MG, DAILY (1/D)
     Route: 048
     Dates: start: 20050101
  4. TERCIAN [Concomitant]
     Dosage: 125 MG, DAILY (1/D)
  5. MIRTAZAPIN [Concomitant]
     Route: 048
  6. ATARAX [Concomitant]
     Indication: ANXIETY
     Dosage: 100 MG, DAILY (1/D)
     Route: 048
  7. BIPRETERAX [Concomitant]
     Indication: HYPOTENSION
     Route: 048

REACTIONS (1)
  - COLITIS ISCHAEMIC [None]
